FAERS Safety Report 19563486 (Version 4)
Quarter: 2021Q3

REPORT INFORMATION
  Report Type: Spontaneous
  Country: US (occurrence: US)
  Receive Date: 20210716
  Receipt Date: 20210806
  Transmission Date: 20211014
  Serious: Yes (Hospitalization)
  Sender: FDA-Public Use
  Company Number: US-CELGENEUS-USA-20210702198

PATIENT
  Age: 88 Year
  Sex: Female

DRUGS (118)
  1. REVLIMID [Suspect]
     Active Substance: LENALIDOMIDE
     Indication: OFF LABEL USE
     Dosage: 10 MILLIGRAM
     Route: 048
     Dates: start: 20210609
  2. ALBUTEROL. [Concomitant]
     Active Substance: ALBUTEROL
     Indication: PRODUCT USED FOR UNKNOWN INDICATION
     Route: 065
  3. ALBUTEROL. [Concomitant]
     Active Substance: ALBUTEROL
     Route: 065
  4. ATORVASTATIN [Concomitant]
     Active Substance: ATORVASTATIN
     Route: 065
  5. CEFDINIR. [Concomitant]
     Active Substance: CEFDINIR
     Route: 065
  6. CEFDINIR. [Concomitant]
     Active Substance: CEFDINIR
     Route: 065
  7. LEVOTHYROXIN [Concomitant]
     Active Substance: LEVOTHYROXINE
     Indication: PRODUCT USED FOR UNKNOWN INDICATION
     Route: 065
  8. LEVOTHYROXIN [Concomitant]
     Active Substance: LEVOTHYROXINE
     Route: 065
  9. LOSARTAN. [Concomitant]
     Active Substance: LOSARTAN
     Indication: PRODUCT USED FOR UNKNOWN INDICATION
     Route: 065
  10. LOSARTAN. [Concomitant]
     Active Substance: LOSARTAN
     Route: 065
  11. OXYBUTYNIN. [Concomitant]
     Active Substance: OXYBUTYNIN CHLORIDE
     Indication: PRODUCT USED FOR UNKNOWN INDICATION
     Route: 065
  12. POTASSIUM CHLORIDE. [Concomitant]
     Active Substance: POTASSIUM CHLORIDE
     Route: 065
  13. AMLODIPINE [Concomitant]
     Active Substance: AMLODIPINE BESYLATE
     Route: 065
  14. AMLODIPINE [Concomitant]
     Active Substance: AMLODIPINE BESYLATE
     Route: 065
  15. ATORVASTATIN [Concomitant]
     Active Substance: ATORVASTATIN
     Indication: PRODUCT USED FOR UNKNOWN INDICATION
     Route: 065
  16. ATORVASTATIN [Concomitant]
     Active Substance: ATORVASTATIN
     Route: 065
  17. BENZONATATE. [Concomitant]
     Active Substance: BENZONATATE
     Indication: PRODUCT USED FOR UNKNOWN INDICATION
     Route: 065
  18. BENZONATATE. [Concomitant]
     Active Substance: BENZONATATE
     Route: 065
  19. BENZONATATE. [Concomitant]
     Active Substance: BENZONATATE
     Route: 065
  20. CEFDINIR. [Concomitant]
     Active Substance: CEFDINIR
     Route: 065
  21. CYCLOBENZAPRINE. [Concomitant]
     Active Substance: CYCLOBENZAPRINE
     Route: 065
  22. CYCLOBENZAPRINE. [Concomitant]
     Active Substance: CYCLOBENZAPRINE
     Route: 065
  23. ELIQUIS [Concomitant]
     Active Substance: APIXABAN
     Route: 065
  24. FUROSEMIDE. [Concomitant]
     Active Substance: FUROSEMIDE
     Indication: PRODUCT USED FOR UNKNOWN INDICATION
     Route: 065
  25. LABETALOL [Concomitant]
     Active Substance: LABETALOL\LABETALOL HYDROCHLORIDE
     Route: 065
  26. LEVOTHYROXIN [Concomitant]
     Active Substance: LEVOTHYROXINE
     Route: 065
  27. LOSARTAN. [Concomitant]
     Active Substance: LOSARTAN
     Route: 065
  28. LOSARTAN. [Concomitant]
     Active Substance: LOSARTAN
     Route: 065
  29. OXYBUTYNIN. [Concomitant]
     Active Substance: OXYBUTYNIN CHLORIDE
     Route: 065
  30. TRIAMT/HCTZ [Concomitant]
     Active Substance: HYDROCHLOROTHIAZIDE\TRIAMTERENE
     Route: 065
  31. TRIAMT/HCTZ [Concomitant]
     Active Substance: HYDROCHLOROTHIAZIDE\TRIAMTERENE
     Route: 065
  32. TRIAMT/HCTZ [Concomitant]
     Active Substance: HYDROCHLOROTHIAZIDE\TRIAMTERENE
     Route: 065
  33. AMLODIPINE [Concomitant]
     Active Substance: AMLODIPINE BESYLATE
     Indication: PRODUCT USED FOR UNKNOWN INDICATION
     Route: 065
  34. CEFDINIR. [Concomitant]
     Active Substance: CEFDINIR
     Indication: PRODUCT USED FOR UNKNOWN INDICATION
     Route: 065
  35. CHOLESTYRAM [Concomitant]
     Active Substance: CHOLESTYRAMINE
     Route: 065
  36. CYCLOBENZAPRINE. [Concomitant]
     Active Substance: CYCLOBENZAPRINE
     Route: 065
  37. ELIQUIS [Concomitant]
     Active Substance: APIXABAN
     Route: 065
  38. LABETALOL [Concomitant]
     Active Substance: LABETALOL\LABETALOL HYDROCHLORIDE
     Route: 065
  39. OXYBUTYNIN. [Concomitant]
     Active Substance: OXYBUTYNIN CHLORIDE
     Route: 065
  40. POTASSIUM CHLORIDE. [Concomitant]
     Active Substance: POTASSIUM CHLORIDE
     Route: 065
  41. POTASSIUM CHLORIDE. [Concomitant]
     Active Substance: POTASSIUM CHLORIDE
     Route: 065
  42. POTASSIUM CHLORIDE. [Concomitant]
     Active Substance: POTASSIUM CHLORIDE
     Route: 065
  43. RABEPRAZOLE [Concomitant]
     Active Substance: RABEPRAZOLE
     Route: 065
  44. TRIAMT/HCTZ [Concomitant]
     Active Substance: HYDROCHLOROTHIAZIDE\TRIAMTERENE
     Route: 065
  45. AMLODIPINE [Concomitant]
     Active Substance: AMLODIPINE BESYLATE
     Route: 065
  46. PANTOPRAZOLE [Concomitant]
     Active Substance: PANTOPRAZOLE
     Indication: PRODUCT USED FOR UNKNOWN INDICATION
     Route: 065
  47. PANTOPRAZOLE [Concomitant]
     Active Substance: PANTOPRAZOLE
     Route: 065
  48. ALBUTEROL. [Concomitant]
     Active Substance: ALBUTEROL
     Route: 065
  49. CHOLESTYRAM [Concomitant]
     Active Substance: CHOLESTYRAMINE
     Indication: PRODUCT USED FOR UNKNOWN INDICATION
     Route: 065
  50. CHOLESTYRAM [Concomitant]
     Active Substance: CHOLESTYRAMINE
     Route: 065
  51. CHOLESTYRAM [Concomitant]
     Active Substance: CHOLESTYRAMINE
     Route: 065
  52. ELIQUIS [Concomitant]
     Active Substance: APIXABAN
     Route: 065
  53. FUROSEMIDE. [Concomitant]
     Active Substance: FUROSEMIDE
     Route: 065
  54. LABETALOL [Concomitant]
     Active Substance: LABETALOL\LABETALOL HYDROCHLORIDE
     Route: 065
  55. LEVOTHYROXIN [Concomitant]
     Active Substance: LEVOTHYROXINE
     Route: 065
  56. LOSARTAN. [Concomitant]
     Active Substance: LOSARTAN
     Route: 065
  57. OXYBUTYNIN. [Concomitant]
     Active Substance: OXYBUTYNIN CHLORIDE
     Route: 065
  58. RABEPRAZOLE [Concomitant]
     Active Substance: RABEPRAZOLE
     Route: 065
  59. ALLOPURINOL. [Concomitant]
     Active Substance: ALLOPURINOL
     Route: 065
  60. ALLOPURINOL. [Concomitant]
     Active Substance: ALLOPURINOL
     Route: 065
  61. AMLODIPINE [Concomitant]
     Active Substance: AMLODIPINE BESYLATE
     Route: 065
  62. PANTOPRAZOLE [Concomitant]
     Active Substance: PANTOPRAZOLE
     Route: 065
  63. PANTOPRAZOLE [Concomitant]
     Active Substance: PANTOPRAZOLE
     Route: 065
  64. REVLIMID [Suspect]
     Active Substance: LENALIDOMIDE
     Indication: DIFFUSE LARGE B-CELL LYMPHOMA
     Dosage: 10 MILLIGRAM
     Route: 048
     Dates: start: 202105
  65. AMIODARONE [Concomitant]
     Active Substance: AMIODARONE
     Route: 065
  66. AMIODARONE [Concomitant]
     Active Substance: AMIODARONE
     Route: 065
  67. AMIODARONE [Concomitant]
     Active Substance: AMIODARONE
     Route: 065
  68. CEFDINIR. [Concomitant]
     Active Substance: CEFDINIR
     Route: 065
  69. CYCLOBENZAPRINE. [Concomitant]
     Active Substance: CYCLOBENZAPRINE
     Indication: PRODUCT USED FOR UNKNOWN INDICATION
     Route: 065
  70. ELIQUIS [Concomitant]
     Active Substance: APIXABAN
     Indication: PRODUCT USED FOR UNKNOWN INDICATION
     Route: 065
  71. FUROSEMIDE. [Concomitant]
     Active Substance: FUROSEMIDE
     Route: 065
  72. FUROSEMIDE. [Concomitant]
     Active Substance: FUROSEMIDE
     Route: 065
  73. LOSARTAN. [Concomitant]
     Active Substance: LOSARTAN
     Route: 065
  74. RABEPRAZOLE [Concomitant]
     Active Substance: RABEPRAZOLE
     Route: 065
  75. PANTOPRAZOLE [Concomitant]
     Active Substance: PANTOPRAZOLE
     Route: 065
  76. REVLIMID [Suspect]
     Active Substance: LENALIDOMIDE
     Dosage: 5 MILLIGRAM
     Route: 048
     Dates: start: 202107
  77. ALBUTEROL. [Concomitant]
     Active Substance: ALBUTEROL
     Route: 065
  78. AMIODARONE [Concomitant]
     Active Substance: AMIODARONE
     Route: 065
  79. ATORVASTATIN [Concomitant]
     Active Substance: ATORVASTATIN
     Route: 065
  80. BENZONATATE. [Concomitant]
     Active Substance: BENZONATATE
     Route: 065
  81. CEFDINIR. [Concomitant]
     Active Substance: CEFDINIR
     Route: 065
  82. CYCLOBENZAPRINE. [Concomitant]
     Active Substance: CYCLOBENZAPRINE
     Route: 065
  83. ELIQUIS [Concomitant]
     Active Substance: APIXABAN
     Route: 065
  84. FUROSEMIDE. [Concomitant]
     Active Substance: FUROSEMIDE
     Route: 065
  85. LEVOTHYROXIN [Concomitant]
     Active Substance: LEVOTHYROXINE
     Route: 065
  86. OXYBUTYNIN. [Concomitant]
     Active Substance: OXYBUTYNIN CHLORIDE
     Route: 065
  87. POTASSIUM CHLORIDE. [Concomitant]
     Active Substance: POTASSIUM CHLORIDE
     Indication: PRODUCT USED FOR UNKNOWN INDICATION
     Route: 065
  88. POTASSIUM CHLORIDE. [Concomitant]
     Active Substance: POTASSIUM CHLORIDE
     Route: 065
  89. RABEPRAZOLE [Concomitant]
     Active Substance: RABEPRAZOLE
     Route: 065
  90. TRIAMT/HCTZ [Concomitant]
     Active Substance: HYDROCHLOROTHIAZIDE\TRIAMTERENE
     Route: 065
  91. ALLOPURINOL. [Concomitant]
     Active Substance: ALLOPURINOL
     Indication: PRODUCT USED FOR UNKNOWN INDICATION
     Route: 065
  92. ALLOPURINOL. [Concomitant]
     Active Substance: ALLOPURINOL
     Route: 065
  93. PANTOPRAZOLE [Concomitant]
     Active Substance: PANTOPRAZOLE
     Route: 065
  94. RITUXIMAB. [Concomitant]
     Active Substance: RITUXIMAB
     Indication: DIFFUSE LARGE B-CELL LYMPHOMA
     Route: 041
     Dates: start: 202105
  95. AMIODARONE [Concomitant]
     Active Substance: AMIODARONE
     Indication: PRODUCT USED FOR UNKNOWN INDICATION
     Route: 065
  96. AMIODARONE [Concomitant]
     Active Substance: AMIODARONE
     Route: 065
  97. ATORVASTATIN [Concomitant]
     Active Substance: ATORVASTATIN
     Route: 065
  98. ATORVASTATIN [Concomitant]
     Active Substance: ATORVASTATIN
     Route: 065
  99. CHOLESTYRAM [Concomitant]
     Active Substance: CHOLESTYRAMINE
     Route: 065
  100. CHOLESTYRAM [Concomitant]
     Active Substance: CHOLESTYRAMINE
     Route: 065
  101. FUROSEMIDE. [Concomitant]
     Active Substance: FUROSEMIDE
     Route: 065
  102. LABETALOL [Concomitant]
     Active Substance: LABETALOL\LABETALOL HYDROCHLORIDE
     Indication: PRODUCT USED FOR UNKNOWN INDICATION
     Route: 065
  103. LABETALOL [Concomitant]
     Active Substance: LABETALOL\LABETALOL HYDROCHLORIDE
     Route: 065
  104. LABETALOL [Concomitant]
     Active Substance: LABETALOL\LABETALOL HYDROCHLORIDE
     Route: 065
  105. LEVOTHYROXIN [Concomitant]
     Active Substance: LEVOTHYROXINE
     Route: 065
  106. TRIAMT/HCTZ [Concomitant]
     Active Substance: HYDROCHLOROTHIAZIDE\TRIAMTERENE
     Indication: PRODUCT USED FOR UNKNOWN INDICATION
     Route: 065
  107. ALBUTEROL. [Concomitant]
     Active Substance: ALBUTEROL
     Route: 065
  108. ALBUTEROL. [Concomitant]
     Active Substance: ALBUTEROL
     Route: 065
  109. BENZONATATE. [Concomitant]
     Active Substance: BENZONATATE
     Route: 065
  110. BENZONATATE. [Concomitant]
     Active Substance: BENZONATATE
     Route: 065
  111. CYCLOBENZAPRINE. [Concomitant]
     Active Substance: CYCLOBENZAPRINE
     Route: 065
  112. ELIQUIS [Concomitant]
     Active Substance: APIXABAN
     Route: 065
  113. OXYBUTYNIN. [Concomitant]
     Active Substance: OXYBUTYNIN CHLORIDE
     Route: 065
  114. RABEPRAZOLE [Concomitant]
     Active Substance: RABEPRAZOLE
     Indication: PRODUCT USED FOR UNKNOWN INDICATION
     Route: 065
  115. RABEPRAZOLE [Concomitant]
     Active Substance: RABEPRAZOLE
     Route: 065
  116. ALLOPURINOL. [Concomitant]
     Active Substance: ALLOPURINOL
     Route: 065
  117. ALLOPURINOL. [Concomitant]
     Active Substance: ALLOPURINOL
     Route: 065
  118. AMLODIPINE [Concomitant]
     Active Substance: AMLODIPINE BESYLATE
     Route: 065

REACTIONS (3)
  - Product dose omission issue [Unknown]
  - Cellulitis [Recovered/Resolved]
  - Pain [Recovered/Resolved]

NARRATIVE: CASE EVENT DATE: 2021
